FAERS Safety Report 9440859 (Version 1)
Quarter: 2013Q3

REPORT INFORMATION
  Report Type: Spontaneous
  Country: IT (occurrence: IT)
  Receive Date: 20130805
  Receipt Date: 20130805
  Transmission Date: 20140515
  Serious: Yes (Death)
  Sender: FDA-Public Use
  Company Number: IT-GILEAD-2013-0080120

PATIENT
  Age: 51 Year
  Sex: Male

DRUGS (5)
  1. TRUVADA [Suspect]
     Indication: HIV INFECTION
  2. RITONAVIR [Concomitant]
     Indication: HIV INFECTION
  3. TIPRANAVIR [Concomitant]
     Indication: HIV INFECTION
  4. RALTEGRAVIR [Concomitant]
     Indication: HIV INFECTION
  5. ENFUVIRTIDE [Concomitant]
     Indication: HIV INFECTION

REACTIONS (1)
  - Progressive multifocal leukoencephalopathy [Fatal]
